FAERS Safety Report 4679964-7 (Version None)
Quarter: 2005Q2

REPORT INFORMATION
  Report Type: 
  Country: None (occurrence: None)
  Receive Date: 20050531
  Receipt Date: 20050518
  Transmission Date: 20051028
  Serious: Yes (Disabling)
  Sender: FDA-Public Use
  Company Number: 2005077677

PATIENT
  Age: 79 Year
  Sex: Male
  Weight: 93 kg

DRUGS (5)
  1. FRAGMIN [Suspect]
     Indication: ILL-DEFINED DISORDER
     Dosage: 5000 U ANTI XA (2 IN 1 D), SUBCUTANEOUS
     Route: 058
     Dates: start: 20050324
  2. NAPROXEN [Suspect]
     Indication: ILL-DEFINED DISORDER
     Dosage: (750 MG), ORAL
     Route: 048
     Dates: start: 20050324
  3. OMEPRAZOLE [Concomitant]
  4. PARECOXIB SODIUM [Concomitant]
  5. DI-ANTALVIC (DEXTROPROPOXYPHENE HYDROCHLORIDE, PARACETAMOL) [Concomitant]

REACTIONS (8)
  - BACK PAIN [None]
  - DRUG INTERACTION [None]
  - HAEMATOMA [None]
  - HAEMOGLOBIN DECREASED [None]
  - HYPOAESTHESIA [None]
  - MOTOR DYSFUNCTION [None]
  - OPERATIVE HAEMORRHAGE [None]
  - SENSORY DISTURBANCE [None]
